FAERS Safety Report 7973481-4 (Version None)
Quarter: 2011Q4

REPORT INFORMATION
  Report Type: 
  Country: None (occurrence: None)
  Receive Date: 20111209
  Receipt Date: 20111130
  Transmission Date: 20120403
  Serious: Yes (Other)
  Sender: FDA-Public Use
  Company Number: 1000025262

PATIENT
  Age: 40 Year
  Sex: Male

DRUGS (4)
  1. CITALOPRAM HYDROBROMIDE [Suspect]
     Indication: DEPRESSION
     Dosage: ORAL
     Route: 048
  2. PREGABALIN [Concomitant]
  3. VALPROATE (VALPROATE SODIUM) (VALPROATE SODIUM) [Concomitant]
  4. OLANZAPINE (OLANZAPINE) (OLANZAPINE) [Concomitant]

REACTIONS (1)
  - GASTROINTESTINAL HAEMORRHAGE [None]
